FAERS Safety Report 11752021 (Version 1)
Quarter: 2015Q4

REPORT INFORMATION
  Report Type: Report from Study
  Country: US (occurrence: US)
  Receive Date: 20151118
  Receipt Date: 20151118
  Transmission Date: 20160304
  Serious: Yes (Other)
  Sender: FDA-Public Use
  Company Number: US-BAXALTA-2015BLT002738

PATIENT
  Age: 45 Year
  Sex: Female
  Weight: 61.36 kg

DRUGS (4)
  1. HYQVIA [Suspect]
     Active Substance: HUMAN IMMUNOGLOBULIN G\HYALURONIDASE RECOMBINANT HUMAN
     Indication: IMMUNODEFICIENCY COMMON VARIABLE
     Dosage: 30 G, RAMP UP
     Route: 058
     Dates: start: 201510
  2. ALBUTEROL. [Concomitant]
     Active Substance: ALBUTEROL
     Indication: ASTHMA
     Dosage: INHALER, 2 PUFFS 3X A DAY FOR YEARS
     Route: 055
  3. TYLENOL [Concomitant]
     Active Substance: ACETAMINOPHEN
     Indication: PREMEDICATION
     Dosage: 2 TABLETS 60 MINUTES PRIOR TO HYQVIA INFUSION
     Route: 048
     Dates: start: 201510
  4. HYQVIA [Suspect]
     Active Substance: HUMAN IMMUNOGLOBULIN G\HYALURONIDASE RECOMBINANT HUMAN
     Dosage: 30 G, RAMP UP
     Route: 058
     Dates: start: 20151106, end: 20151106

REACTIONS (3)
  - Sinusitis [Recovering/Resolving]
  - Pneumonia [Recovering/Resolving]
  - Arthropod bite [Recovered/Resolved]

NARRATIVE: CASE EVENT DATE: 20151110
